FAERS Safety Report 4893827-3 (Version None)
Quarter: 2006Q1

REPORT INFORMATION
  Report Type: 
  Country: None (occurrence: None)
  Receive Date: 20060127
  Receipt Date: 20050623
  Transmission Date: 20060701
  Serious: No
  Sender: FDA-Public Use
  Company Number: US-GLAXOSMITHKLINE-A0563930A

PATIENT
  Age: 59 Year
  Sex: Female

DRUGS (3)
  1. MEPRON [Suspect]
     Indication: INFECTION PROTOZOAL
     Route: 048
     Dates: end: 20050618
  2. THYROID TAB [Concomitant]
  3. UNSPECIFIED MEDICATIONS [Concomitant]
     Route: 065

REACTIONS (4)
  - DYSPNOEA [None]
  - FATIGUE [None]
  - FEELING COLD [None]
  - PYREXIA [None]
